FAERS Safety Report 8418205-1 (Version None)
Quarter: 2012Q2

REPORT INFORMATION
  Report Type: 
  Country: None (occurrence: None)
  Receive Date: 20120607
  Receipt Date: 20120531
  Transmission Date: 20120825
  Serious: Yes (Hospitalization)
  Sender: FDA-Public Use
  Company Number: FR-GE HEALTHCARE MEDICAL DIAGNOSTICS-OMPQ-NO-1206S-0563

PATIENT
  Sex: Female

DRUGS (5)
  1. OMNIPAQUE 140 [Suspect]
     Indication: SUBARACHNOID HAEMORRHAGE
     Route: 050
     Dates: start: 20120420, end: 20120420
  2. NEXIUM [Suspect]
  3. CRESTOR [Suspect]
  4. TIAPRIDAL [Suspect]
  5. KEPPRA [Suspect]

REACTIONS (6)
  - RASH PUSTULAR [None]
  - CYTOLYTIC HEPATITIS [None]
  - FACE OEDEMA [None]
  - DRUG RASH WITH EOSINOPHILIA AND SYSTEMIC SYMPTOMS [None]
  - EOSINOPHILIA [None]
  - MONOCYTOSIS [None]
